FAERS Safety Report 5927767-5 (Version None)
Quarter: 2008Q4

REPORT INFORMATION
  Report Type: 
  Country: None (occurrence: None)
  Receive Date: 20081023
  Receipt Date: 20080730
  Transmission Date: 20090506
  Serious: No
  Sender: FDA-Public Use
  Company Number: US-ASTRAZENECA-2008UW15692

PATIENT
  Sex: Male

DRUGS (1)
  1. MERREM [Suspect]
     Route: 017

REACTIONS (1)
  - MALAISE [None]
